FAERS Safety Report 4602810-4 (Version None)
Quarter: 2005Q1

REPORT INFORMATION
  Report Type: 
  Country: None (occurrence: None)
  Receive Date: 20050307
  Receipt Date: 20041217
  Transmission Date: 20050727
  Serious: Yes (Hospitalization)
  Sender: FDA-Public Use
  Company Number: 2004236711SE

PATIENT
  Age: 61 Year
  Sex: Female

DRUGS (3)
  1. BEXTRA [Suspect]
     Indication: ILL-DEFINED DISORDER
     Dosage: (2 IN 1 D), ORAL
     Route: 048
     Dates: start: 20031211
  2. ACETAMINOPHEN [Concomitant]
  3. PRAVASTATIN SODIUM [Concomitant]

REACTIONS (13)
  - DIARRHOEA [None]
  - DIZZINESS [None]
  - FOOT OPERATION [None]
  - HAEMATOMA [None]
  - HEADACHE [None]
  - HYPERTENSION [None]
  - LIGAMENT DISORDER [None]
  - LIMB OPERATION [None]
  - LIVER DISORDER [None]
  - PALPITATIONS [None]
  - POSTOPERATIVE INFECTION [None]
  - TRANSIENT ISCHAEMIC ATTACK [None]
  - WEIGHT INCREASED [None]
